FAERS Safety Report 4690394-4 (Version None)
Quarter: 2005Q2

REPORT INFORMATION
  Report Type: 
  Country: None (occurrence: None)
  Receive Date: 20050615
  Receipt Date: 20050310
  Transmission Date: 20051028
  Serious: Yes (Hospitalization)
  Sender: FDA-Public Use
  Company Number: US-MERCK-0503USA02367

PATIENT
  Age: 57 Year
  Sex: Male
  Weight: 120 kg

DRUGS (6)
  1. VIOXX [Suspect]
     Indication: MONARTHRITIS
     Route: 048
     Dates: start: 20010920, end: 20041001
  2. VIOXX [Suspect]
     Route: 048
     Dates: start: 20010920, end: 20031101
  3. VIOXX [Suspect]
     Route: 048
     Dates: start: 20010920, end: 20041001
  4. VIOXX [Suspect]
     Route: 048
     Dates: start: 20010920, end: 20031101
  5. XENICAL [Concomitant]
     Route: 065
  6. LEVOXYL [Concomitant]
     Route: 065

REACTIONS (36)
  - ANAEMIA [None]
  - ANXIETY [None]
  - BLOOD PRESSURE INCREASED [None]
  - CARDIOMYOPATHY [None]
  - DEEP VEIN THROMBOSIS [None]
  - DEPRESSION [None]
  - DIARRHOEA [None]
  - DIVERTICULUM INTESTINAL [None]
  - DIZZINESS [None]
  - DYSPHAGIA [None]
  - DYSPNOEA EXERTIONAL [None]
  - EMOTIONAL DISTRESS [None]
  - ERECTILE DYSFUNCTION [None]
  - EYELID PTOSIS [None]
  - GASTRITIS [None]
  - GASTROINTESTINAL HAEMORRHAGE [None]
  - HAEMATOMA [None]
  - HAEMATURIA [None]
  - HERPES SIMPLEX [None]
  - HYPOALBUMINAEMIA [None]
  - INTERVERTEBRAL DISC PROTRUSION [None]
  - MELAENA [None]
  - MITRAL VALVE INCOMPETENCE [None]
  - NORMOCHROMIC NORMOCYTIC ANAEMIA [None]
  - PULMONARY EMBOLISM [None]
  - PULMONARY VALVE INCOMPETENCE [None]
  - SCROTAL SWELLING [None]
  - SINUS BRADYCARDIA [None]
  - SINUS CONGESTION [None]
  - SPINAL OSTEOARTHRITIS [None]
  - THROMBOCYTOPENIA [None]
  - TINNITUS [None]
  - TRICUSPID VALVE INCOMPETENCE [None]
  - URTICARIA [None]
  - VASCULAR PSEUDOANEURYSM [None]
  - VENTRICULAR DYSFUNCTION [None]
